FAERS Safety Report 8598695-4 (Version None)
Quarter: 2012Q3

REPORT INFORMATION
  Report Type: 
  Country: None (occurrence: None)
  Receive Date: 20120816
  Receipt Date: 20120807
  Transmission Date: 20120928
  Serious: Yes (Other)
  Sender: FDA-Public Use
  Company Number: FR-ASTRAZENECA-2012SE56395

PATIENT
  Age: 24183 Day
  Sex: Female

DRUGS (4)
  1. ZOMETA [Suspect]
     Dosage: 4 MG/ 5 ML, 1 DF ONCE A WEEK
     Route: 042
     Dates: start: 20101007, end: 20120503
  2. NEXIUM [Suspect]
     Route: 048
     Dates: start: 20111215, end: 20120731
  3. ZOMETA [Suspect]
     Dosage: 4 MG/ 100 ML, 1 DF ONCE A WEEK
     Route: 042
     Dates: start: 20120707
  4. ZOMETA [Suspect]
     Dosage: 4 MG/ 100 ML, 1 DF ONCE A WEEK
     Route: 042
     Dates: start: 20120606, end: 20120621

REACTIONS (12)
  - LYMPHADENOPATHY [None]
  - BONE PAIN [None]
  - INFLAMMATION [None]
  - INFLUENZA LIKE ILLNESS [None]
  - ARTHRALGIA [None]
  - GROIN PAIN [None]
  - VEIN WALL HYPERTROPHY [None]
  - NAUSEA [None]
  - ERYTHEMA [None]
  - LOCAL SWELLING [None]
  - GAIT DISTURBANCE [None]
  - MUSCULOSKELETAL CHEST PAIN [None]
